FAERS Safety Report 16842549 (Version 2)
Quarter: 2019Q4

REPORT INFORMATION
  Report Type: Spontaneous
  Country: DE (occurrence: DE)
  Receive Date: 20190924
  Receipt Date: 20191101
  Transmission Date: 20200122
  Serious: Yes (Hospitalization, Disabling, Other)
  Sender: FDA-Public Use
  Company Number: DE-DRREDDYS-USA/GER/19/0114330

PATIENT
  Age: 69 Year
  Sex: Female

DRUGS (1)
  1. SIMVASTATIN. [Suspect]
     Active Substance: SIMVASTATIN
     Indication: PRODUCT USED FOR UNKNOWN INDICATION

REACTIONS (5)
  - Weight decreased [Recovering/Resolving]
  - Immune-mediated myositis [Recovered/Resolved]
  - Decreased appetite [Recovered/Resolved]
  - Gait inability [Recovered/Resolved]
  - Dysphagia [Recovered/Resolved]
